FAERS Safety Report 4751384-6 (Version None)
Quarter: 2005Q3

REPORT INFORMATION
  Report Type: 
  Country: None (occurrence: None)
  Receive Date: 20050822
  Receipt Date: 20050809
  Transmission Date: 20060218
  Serious: Yes (Other)
  Sender: FDA-Public Use
  Company Number: 2005113534

PATIENT
  Age: 72 Year
  Sex: Male
  Weight: 110 kg

DRUGS (14)
  1. LYRICA [Suspect]
     Indication: DIABETIC NEUROPATHY
     Dosage: 300 MG, ORAL
     Route: 048
     Dates: start: 20050511, end: 20050711
  2. BENDROFLUMETHIAZIDE (BENDROFLUMETHIAZIDE) [Concomitant]
  3. BISOPROLOL (BISOPROLOL) [Concomitant]
  4. ACETAMINOPHEN W/ CODEINE [Concomitant]
  5. DIGOXIN [Concomitant]
  6. DORZOLAMIDE (DORZOLAMIDE) [Concomitant]
  7. GLIMEPIRIDE [Concomitant]
  8. LATANOPROST [Concomitant]
  9. ENALAPRIL MALEATE [Concomitant]
  10. PANTOPRAZOLE SODIUM [Concomitant]
  11. ROSIGLITAZONE (ROSIGLITAZONE) [Concomitant]
  12. ROSUVASTATIN (ROSUVASTATIN) [Concomitant]
  13. SPIRONOLACTONE [Concomitant]
  14. WARFARIN (WARFARIN) [Concomitant]

REACTIONS (1)
  - BONE MARROW DEPRESSION [None]
